FAERS Safety Report 10257303 (Version 2)
Quarter: 2014Q2

REPORT INFORMATION
  Report Type: Spontaneous
  Country: US (occurrence: US)
  Receive Date: 20140625
  Receipt Date: 20140625
  Transmission Date: 20141212
  Serious: No
  Sender: FDA-Public Use
  Company Number: US-AMGEN-USASP2014033339

PATIENT
  Age: 51 Year
  Sex: Male
  Weight: 79.82 kg

DRUGS (3)
  1. ENBREL [Suspect]
     Indication: ANKYLOSING SPONDYLITIS
     Dosage: UNK
     Route: 065
  2. ENBREL [Suspect]
     Indication: SPONDYLOARTHROPATHY
  3. HUMIRA [Suspect]
     Indication: PRODUCT USED FOR UNKNOWN INDICATION
     Dosage: 40 MG, Q2WK
     Route: 058
     Dates: start: 20140516, end: 20140530

REACTIONS (2)
  - Drug ineffective [Unknown]
  - Dyspnoea [Unknown]
